FAERS Safety Report 18857538 (Version 1)
Quarter: 2021Q1

REPORT INFORMATION
  Report Type: Report from Study
  Country: US (occurrence: US)
  Receive Date: 20210208
  Receipt Date: 20210208
  Transmission Date: 20210420
  Serious: Yes (Other)
  Sender: FDA-Public Use
  Company Number: US-UCBSA-2021004099

PATIENT
  Age: 49 Year
  Sex: Female

DRUGS (1)
  1. BRIVARACETAM [Suspect]
     Active Substance: BRIVARACETAM
     Indication: SEIZURE
     Dosage: 100MG?250MG IN AM AND 500MG IN PM

REACTIONS (3)
  - Product use issue [Unknown]
  - Seizure [Unknown]
  - Overdose [Unknown]

NARRATIVE: CASE EVENT DATE: 202011
